FAERS Safety Report 5014895-4 (Version None)
Quarter: 2006Q2

REPORT INFORMATION
  Report Type: 
  Country: None (occurrence: None)
  Receive Date: 20060414
  Receipt Date: 20060119
  Transmission Date: 20061013
  Serious: No
  Sender: FDA-Public Use
  Company Number: 2006SP000342

PATIENT
  Age: 66 Year
  Sex: Female
  Weight: 79.8331 kg

DRUGS (5)
  1. LUNESTA [Suspect]
     Indication: INSOMNIA
     Dosage: 3 MG ; ORAL
     Route: 048
     Dates: start: 20060117
  2. WELLBUTRIN [Concomitant]
  3. ESTROGENS SOL/INJ [Concomitant]
  4. THYROID TAB [Concomitant]
  5. TEMAZEPAM [Concomitant]

REACTIONS (1)
  - DYSGEUSIA [None]
